FAERS Safety Report 7654398 (Version 3)
Quarter: 2013Q4

REPORT INFORMATION
  Report Type: Spontaneous
  Country: US (occurrence: US)
  Receive Date: 20101103
  Receipt Date: 20131125
  Transmission Date: 20140711
  Serious: Yes (Hospitalization, Other)
  Sender: FDA-Public Use
  Company Number: US-JNJFOC-20100703640

PATIENT
  Age: 45 Year
  Sex: 0

DRUGS (2)
  1. LEVAQUIN [Suspect]
     Indication: HYPOGAMMAGLOBULINAEMIA
     Route: 048
     Dates: start: 20070427, end: 20090712
  2. PREDNISONE [Suspect]
     Indication: PRODUCT USED FOR UNKNOWN INDICATION
     Route: 065

REACTIONS (2)
  - Meniscus injury [Unknown]
  - Tendon rupture [Unknown]
